FAERS Safety Report 23096966 (Version 2)
Quarter: 2023Q4

REPORT INFORMATION
  Report Type: Report from Study
  Country: TW (occurrence: TW)
  Receive Date: 20231023
  Receipt Date: 20231030
  Transmission Date: 20240110
  Serious: Yes (Hospitalization)
  Sender: FDA-Public Use
  Company Number: TW-Eisai Medical Research-EC-2023-134663

PATIENT
  Age: 44 Year
  Sex: Male
  Weight: 44.8 kg

DRUGS (12)
  1. LENVATINIB [Suspect]
     Active Substance: LENVATINIB
     Indication: Squamous cell carcinoma of head and neck
     Dosage: SUSPENSION; NASOGASTRIC
     Route: 048
     Dates: start: 20221129, end: 20230212
  2. LENVATINIB [Suspect]
     Active Substance: LENVATINIB
     Dosage: STARTING DOSE AT 14 MG, FLUCTUATED DOSAGE, SUSPENSION; NASOGASTRIC
     Route: 048
     Dates: start: 20230302
  3. PEMBROLIZUMAB [Suspect]
     Active Substance: PEMBROLIZUMAB
     Indication: Squamous cell carcinoma of head and neck
     Route: 042
     Dates: start: 20221129, end: 20230131
  4. PEMBROLIZUMAB [Suspect]
     Active Substance: PEMBROLIZUMAB
     Route: 042
     Dates: start: 20230302
  5. UTRAPHEN [Concomitant]
     Dates: start: 20221220, end: 20230221
  6. LEVOTHYROXINE SODIUM [Concomitant]
     Active Substance: LEVOTHYROXINE SODIUM
     Dates: start: 20221129, end: 20230221
  7. SENNOSIDES [Concomitant]
     Active Substance: SENNOSIDES
     Dates: start: 20221220
  8. FRADIOMYCIN [NEOMYCIN] [Concomitant]
     Dates: start: 20230110, end: 20230216
  9. UREA [Concomitant]
     Active Substance: UREA
     Dates: start: 20230110, end: 20230221
  10. SPERSIN [BACITRACIN;NEOMYCIN SULFATE;POLYMYXIN B SULFATE] [Concomitant]
     Dates: start: 20230131, end: 20230221
  11. TAITA NO.5 [Concomitant]
     Dates: start: 20230214, end: 20230219
  12. DEXTROSE AND SODIUM CHLORIDE [Concomitant]
     Active Substance: DEXTROSE MONOHYDRATE\SODIUM CHLORIDE
     Dates: start: 20230214, end: 20230219

REACTIONS (1)
  - Mouth haemorrhage [Recovered/Resolved]

NARRATIVE: CASE EVENT DATE: 20230216
